FAERS Safety Report 14069195 (Version 1)
Quarter: 2017Q4

REPORT INFORMATION
  Report Type: Other
  Country: IT (occurrence: IT)
  Receive Date: 20171010
  Receipt Date: 20171010
  Transmission Date: 20180321
  Serious: Yes (Hospitalization)
  Sender: FDA-Public Use
  Company Number: IT-CELLTRION INC.-2017IT013406

PATIENT

DRUGS (1)
  1. REMSIMA [Suspect]
     Active Substance: INFLIXIMAB
     Indication: CROHN^S DISEASE
     Dosage: 250 MG, AS NEEDED
     Route: 042
     Dates: start: 20170718, end: 20170718

REACTIONS (5)
  - Gait inability [Recovering/Resolving]
  - Inappropriate schedule of drug administration [Unknown]
  - Back pain [Recovering/Resolving]
  - Pain in jaw [Recovering/Resolving]
  - Pain in extremity [Recovering/Resolving]

NARRATIVE: CASE EVENT DATE: 20170725
